FAERS Safety Report 19447075 (Version 1)
Quarter: 2021Q2

REPORT INFORMATION
  Report Type: Spontaneous
  Country: CN (occurrence: CN)
  Receive Date: 20210622
  Receipt Date: 20210622
  Transmission Date: 20210717
  Serious: Yes (Other)
  Sender: FDA-Public Use
  Company Number: CN-SA-2021SA203776

PATIENT
  Age: 21 Year
  Sex: Male
  Weight: 43 kg

DRUGS (9)
  1. ISONIAZID. [Suspect]
     Active Substance: ISONIAZID
     Indication: PULMONARY TUBERCULOSIS
     Dosage: 0.3 G, QD (IV GTT)
     Route: 041
     Dates: start: 20210415, end: 20210423
  2. SULBACTAM SODIUM [Concomitant]
     Active Substance: SULBACTAM SODIUM
  3. PYRAZINAMIDE. [Suspect]
     Active Substance: PYRAZINAMIDE
     Indication: PULMONARY TUBERCULOSIS
     Dosage: 0.75 G, BID
     Route: 048
     Dates: start: 20210415, end: 20210420
  4. LEVOFLOXACIN. [Suspect]
     Active Substance: LEVOFLOXACIN
     Indication: PULMONARY TUBERCULOSIS
     Dosage: 0.5 G, QD
     Route: 041
     Dates: start: 20210420, end: 20210422
  5. GLUCOSE [Concomitant]
     Active Substance: DEXTROSE
     Dates: start: 20210415, end: 20210423
  6. ETHAMBUTOL [Suspect]
     Active Substance: ETHAMBUTOL HYDROCHLORIDE
     Indication: PULMONARY TUBERCULOSIS
     Dosage: 0.75 G, QD
     Route: 048
     Dates: start: 20210415, end: 20210422
  7. RIFAMPICIN [Suspect]
     Active Substance: RIFAMPIN
     Indication: PULMONARY TUBERCULOSIS
     Dosage: 0.45 G, QD (0.45G QD IVGTT)
     Route: 041
     Dates: start: 20210415, end: 20210423
  8. SODIUM CHLORIDE. [Concomitant]
     Active Substance: SODIUM CHLORIDE
     Dates: start: 20210415, end: 20210423
  9. CEFOPERAZONE SODIUM AND SULBACTAM SODIUM [Suspect]
     Active Substance: CEFOPERAZONE SODIUM\SULBACTAM SODIUM
     Indication: PNEUMONIA
     Dosage: 1.5 G, Q8H (1.5G Q8H IVGTT)
     Route: 041
     Dates: start: 20210422, end: 20210422

REACTIONS (10)
  - Nausea [Recovering/Resolving]
  - Nausea [Recovering/Resolving]
  - Rash [Recovered/Resolved]
  - Drug-induced liver injury [Recovering/Resolving]
  - Hepatic function abnormal [Recovering/Resolving]
  - Vomiting [Recovering/Resolving]
  - Off label use [Recovering/Resolving]
  - Pruritus [Recovering/Resolving]
  - Drug eruption [Recovering/Resolving]
  - Vomiting [Recovering/Resolving]

NARRATIVE: CASE EVENT DATE: 20210420
